FAERS Safety Report 16395039 (Version 1)
Quarter: 2019Q2

REPORT INFORMATION
  Report Type: Spontaneous
  Country: GR (occurrence: GR)
  Receive Date: 20190605
  Receipt Date: 20190605
  Transmission Date: 20190711
  Serious: Yes (Other)
  Sender: FDA-Public Use
  Company Number: GR-PFIZER INC-2019233667

PATIENT
  Age: 66 Year
  Sex: Male

DRUGS (2)
  1. EZETIMIBE + SIMVASTATIN [Suspect]
     Active Substance: EZETIMIBE\SIMVASTATIN
     Indication: HYPERLIPIDAEMIA
     Dosage: SIMVASTAIN 10MG/EZETIMIBE 10 MG
  2. ATORVASTATIN CALCIUM. [Suspect]
     Active Substance: ATORVASTATIN CALCIUM
     Indication: HYPERLIPIDAEMIA
     Dosage: 40 MG, UNK

REACTIONS (1)
  - Immune-mediated necrotising myopathy [Recovering/Resolving]
